FAERS Safety Report 6148419-5 (Version None)
Quarter: 2009Q2

REPORT INFORMATION
  Report Type: 
  Country: None (occurrence: None)
  Receive Date: 20090408
  Receipt Date: 20090402
  Transmission Date: 20091009
  Serious: Yes (Death)
  Sender: FDA-Public Use
  Company Number: US-GILEAD-2009-0021282

PATIENT
  Sex: Female
  Weight: 88.53 kg

DRUGS (20)
  1. LETAIRIS [Suspect]
     Indication: PULMONARY ARTERIAL HYPERTENSION
     Route: 048
     Dates: start: 20080611, end: 20090304
  2. VIAGRA [Concomitant]
  3. OXYGEN [Concomitant]
  4. WARFARIN [Concomitant]
  5. FUROSEMIDE [Concomitant]
  6. DILTIAZEM [Concomitant]
  7. BENAZEPRIL HYDROCHLORIDE [Concomitant]
  8. ASPIRIN [Concomitant]
  9. SPIRONOLACTONE [Concomitant]
  10. METOLAZONE [Concomitant]
  11. RHINOCORT [Concomitant]
  12. CENTRUM SILVER [Concomitant]
  13. LORAZEPAM [Concomitant]
  14. HYDROCODONE BITARTRATE [Concomitant]
  15. LUNESTA [Concomitant]
  16. PRILOSEC OTC [Concomitant]
  17. FISH OIL [Concomitant]
  18. MAGNESIUM SULFATE [Concomitant]
  19. POTASSIUM CHLORIDE [Concomitant]
  20. CLARITIN-D [Concomitant]

REACTIONS (2)
  - LIVER FUNCTION TEST ABNORMAL [None]
  - PULMONARY HYPERTENSION [None]
